FAERS Safety Report 5261441-6 (Version None)
Quarter: 2007Q1

REPORT INFORMATION
  Report Type: 
  Country: None (occurrence: None)
  Receive Date: 20061218
  Receipt Date: 20060918
  Transmission Date: 20070707
  Serious: No
  Sender: FDA-Public Use
  Company Number: US200609004277

PATIENT
  Age: 69 Year
  Sex: Male

DRUGS (5)
  1. CIALIS [Suspect]
     Dosage: 20 MG
     Dates: start: 20041201
  2. ALLEGRA [Concomitant]
  3. SYNTHROID [Concomitant]
  4. ASPIRIN [Concomitant]
  5. LIPITOR [Concomitant]

REACTIONS (1)
  - EPISTAXIS [None]
